FAERS Safety Report 5286153-4 (Version None)
Quarter: 2007Q2

REPORT INFORMATION
  Report Type: 
  Country: None (occurrence: None)
  Receive Date: 20070404
  Receipt Date: 20070330
  Transmission Date: 20071010
  Serious: Yes (Other)
  Sender: FDA-Public Use
  Company Number: US-BRISTOL-MYERS SQUIBB COMPANY-13732870

PATIENT
  Age: 37 Year
  Sex: Female
  Weight: 98 kg

DRUGS (1)
  1. DEFINITY [Suspect]
     Indication: CARDIAC STRESS TEST
     Dosage: 2CC OF DEFINITY/8CCNSS
     Route: 041

REACTIONS (4)
  - PRURITUS [None]
  - RASH [None]
  - THROAT TIGHTNESS [None]
  - URTICARIA [None]
